FAERS Safety Report 4721382-7 (Version None)
Quarter: 2005Q3

REPORT INFORMATION
  Report Type: 
  Country: None (occurrence: None)
  Receive Date: 20050721
  Receipt Date: 20040728
  Transmission Date: 20060218
  Serious: No
  Sender: FDA-Public Use
  Company Number: US-BRISTOL-MYERS SQUIBB COMPANY-12653986

PATIENT
  Age: 71 Year
  Sex: Female
  Weight: 68 kg

DRUGS (7)
  1. COUMADIN [Suspect]
     Indication: MYOCARDIAL INFARCTION
     Dosage: 2.5MG 5 X PER WK AND 5 MG 2 X PER WK; START DATE NOT CLEAR, BUT SOMETIME IN JUN.
     Route: 048
     Dates: start: 20040601
  2. COUMADIN [Suspect]
     Indication: ANGIOPLASTY
     Dosage: 2.5MG 5 X PER WK AND 5 MG 2 X PER WK; START DATE NOT CLEAR, BUT SOMETIME IN JUN.
     Route: 048
     Dates: start: 20040601
  3. PLAVIX [Concomitant]
  4. ASPIRIN [Concomitant]
  5. LIPITOR [Concomitant]
  6. COREG [Concomitant]
  7. LASIX [Concomitant]

REACTIONS (2)
  - CONTUSION [None]
  - INTERNATIONAL NORMALISED RATIO FLUCTUATION [None]
